FAERS Safety Report 5704326-0 (Version None)
Quarter: 2008Q2

REPORT INFORMATION
  Report Type: 
  Country: None (occurrence: None)
  Receive Date: 20080414
  Receipt Date: 20080401
  Transmission Date: 20081010
  Serious: Yes (Hospitalization)
  Sender: FDA-Public Use
  Company Number: PL-AMGEN-UK265791

PATIENT
  Sex: Male

DRUGS (7)
  1. PANITUMUMAB [Suspect]
     Indication: COLORECTAL CANCER
     Route: 042
     Dates: start: 20070913, end: 20080131
  2. PANITUMUMAB [Suspect]
     Route: 042
     Dates: start: 20080226
  3. OXALIPLATIN [Concomitant]
     Route: 042
     Dates: start: 20080131
  4. FLUOROURACIL [Concomitant]
     Route: 040
     Dates: start: 20080131, end: 20080201
  5. LEUCOVORIN CALCIUM [Concomitant]
     Dates: start: 20080131, end: 20080201
  6. ONDANSETRON [Concomitant]
     Route: 065
     Dates: start: 20080121, end: 20080121
  7. DEXAMETHASONE [Concomitant]
     Route: 065
     Dates: start: 20080131, end: 20080131

REACTIONS (1)
  - CONJUNCTIVITIS INFECTIVE [None]
